FAERS Safety Report 4376473-X (Version None)
Quarter: 2004Q2

REPORT INFORMATION
  Report Type: 
  Country: None (occurrence: None)
  Receive Date: 20040608
  Receipt Date: 20040513
  Transmission Date: 20050107
  Serious: Yes (Other)
  Sender: FDA-Public Use
  Company Number: S04-USA-03037-01

PATIENT
  Sex: Female

DRUGS (1)
  1. CELEXA [Suspect]

REACTIONS (3)
  - ADVERSE EVENT [None]
  - DRUG DEPENDENCE [None]
  - EMOTIONAL DISTRESS [None]
